FAERS Safety Report 9938715 (Version 2)
Quarter: 2014Q2

REPORT INFORMATION
  Report Type: Spontaneous
  Country: US (occurrence: US)
  Receive Date: 20140303
  Receipt Date: 20140403
  Transmission Date: 20141212
  Serious: Yes (Death)
  Sender: FDA-Public Use
  Company Number: US-PFIZER INC-2014055859

PATIENT
  Sex: Male

DRUGS (2)
  1. GLIPIZIDE [Suspect]
     Dosage: UNK
  2. GLIPIZIDE XL [Suspect]
     Dosage: UNK
     Dates: start: 201310

REACTIONS (2)
  - Death [Fatal]
  - Blood glucose fluctuation [Unknown]
